FAERS Safety Report 10095530 (Version 1)
Quarter: 2014Q2

REPORT INFORMATION
  Report Type: Spontaneous
  Country: US (occurrence: US)
  Receive Date: 20140422
  Receipt Date: 20140422
  Transmission Date: 20141212
  Serious: Yes (Hospitalization, Other)
  Sender: FDA-Public Use
  Company Number: US-AMGEN-USASP2014027770

PATIENT
  Age: 80 Year
  Sex: Female

DRUGS (1)
  1. PROLIA [Suspect]
     Indication: PRODUCT USED FOR UNKNOWN INDICATION
     Dosage: UNK UNK, Q6MO
     Route: 065
     Dates: start: 2011

REACTIONS (12)
  - Nephrolithiasis [Recovered/Resolved]
  - Chondrolysis [Recovered/Resolved]
  - Fall [Unknown]
  - Sneezing [Unknown]
  - Ligament sprain [Unknown]
  - Nodule [Unknown]
  - Bone disorder [Unknown]
  - Abdominal discomfort [Unknown]
  - Nasal polyps [Unknown]
  - Cough [Unknown]
  - Hypersensitivity [Unknown]
  - Pain in extremity [Unknown]
